FAERS Safety Report 16841768 (Version 3)
Quarter: 2020Q1

REPORT INFORMATION
  Report Type: Spontaneous
  Country: TW (occurrence: TW)
  Receive Date: 20190923
  Receipt Date: 20200114
  Transmission Date: 20200409
  Serious: Yes (Hospitalization)
  Sender: FDA-Public Use
  Company Number: PHHY2019TW220165

PATIENT
  Age: 64 Year
  Sex: Female
  Weight: 59 kg

DRUGS (18)
  1. ZOMETA [Suspect]
     Active Substance: ZOLEDRONIC ACID
     Dosage: 4 MG, Q3MO
     Route: 042
     Dates: start: 20181114, end: 20190306
  2. DIOVAN [Concomitant]
     Active Substance: VALSARTAN
     Indication: HYPERTENSION
     Dosage: UNK
     Route: 065
     Dates: start: 20180530
  3. AMOXICILLIN. [Concomitant]
     Active Substance: AMOXICILLIN
     Indication: WOUND INFECTION
     Dosage: UNK
     Route: 065
     Dates: start: 20190716
  4. IWELL [Concomitant]
     Indication: PROPHYLAXIS
     Dosage: UNK
     Route: 065
     Dates: start: 20190814, end: 20190911
  5. BIO BROMELAIN [Concomitant]
     Indication: INFLAMMATION
     Dosage: UNK
     Route: 065
     Dates: start: 20190904
  6. AMOXICILLIN. [Concomitant]
     Active Substance: AMOXICILLIN
     Dosage: UNK
     Route: 065
     Dates: start: 20190814, end: 20191120
  7. CHLORHEXIDINE [Concomitant]
     Active Substance: CHLORHEXIDINE
     Indication: LOCAL REACTION
     Dosage: UNK
     Route: 065
     Dates: start: 20190906, end: 20190911
  8. MORPHINE [Concomitant]
     Active Substance: MORPHINE
     Indication: ANALGESIC THERAPY
     Dosage: 10 MG, Q6H
     Route: 065
     Dates: start: 20190904, end: 20190905
  9. ZOMETA [Suspect]
     Active Substance: ZOLEDRONIC ACID
     Indication: METASTASES TO BONE
     Dosage: 4 MG, QMO
     Route: 042
     Dates: start: 20140512, end: 20160921
  10. ZOMETA [Suspect]
     Active Substance: ZOLEDRONIC ACID
     Dosage: 4 MG, Q2MO
     Route: 042
     Dates: start: 20161116, end: 20180725
  11. DEXAMETHASONE DISODIUM PHOSPHATE [Concomitant]
     Active Substance: DEXAMETHASONE SODIUM PHOSPHATE
     Indication: INFLAMMATION
     Dosage: UNK
     Route: 065
     Dates: start: 20190904
  12. LETROZOLE. [Suspect]
     Active Substance: LETROZOLE
     Indication: BREAST CANCER
     Dosage: 2.5 MG, QD
     Route: 048
     Dates: start: 20140604
  13. PALBOCICLIB [Suspect]
     Active Substance: PALBOCICLIB
     Indication: BREAST CANCER
     Dosage: 125 MG, QD
     Route: 048
     Dates: start: 20140604
  14. DICLOFENAC POTASSIUM. [Concomitant]
     Active Substance: DICLOFENAC POTASSIUM
     Indication: ORAL PAIN
     Dosage: 25 MG, UNK
     Route: 048
     Dates: start: 20190529, end: 20190611
  15. GLIMEPIRIDE. [Concomitant]
     Active Substance: GLIMEPIRIDE
     Indication: DIABETES MELLITUS
     Dosage: UNK
     Route: 065
     Dates: start: 20190529
  16. TRANSAMIN [Concomitant]
     Active Substance: TRANEXAMIC ACID
     Indication: INFLAMMATION
     Dosage: UNK
     Route: 065
     Dates: start: 20190904, end: 20190905
  17. DICLOFENAC POTASSIUM. [Concomitant]
     Active Substance: DICLOFENAC POTASSIUM
     Dosage: UNK
     Route: 065
     Dates: start: 20190814, end: 20191120
  18. ACTRAPID [Concomitant]
     Active Substance: INSULIN HUMAN
     Indication: DIABETES MELLITUS
     Dosage: UNK
     Route: 065
     Dates: start: 20190903

REACTIONS (1)
  - Osteonecrosis of jaw [Recovered/Resolved]

NARRATIVE: CASE EVENT DATE: 20190903
